FAERS Safety Report 8333904-8 (Version None)
Quarter: 2012Q2

REPORT INFORMATION
  Report Type: 
  Country: None (occurrence: None)
  Receive Date: 20120503
  Receipt Date: 20120416
  Transmission Date: 20120825
  Serious: No
  Sender: FDA-Public Use
  Company Number: US-PFIZER INC-2012068040

PATIENT
  Sex: Male

DRUGS (20)
  1. HYDRODIURIL [Concomitant]
     Dosage: 25 MG
  2. ACTOS [Concomitant]
     Dosage: 45 MG
  3. ACCURETIC [Suspect]
     Dosage: 20-12.5 MG PER TABLET
  4. SPIRIVA [Suspect]
  5. TENORMIN [Concomitant]
     Dosage: 50 MG
  6. VITAMIN B-12 [Concomitant]
     Dosage: 2500 MCG
     Route: 060
  7. SITAGLIPTIN AND METFORMIN HYDROCHLORIDE [Concomitant]
     Dosage: 50-1000 MG PER
  8. ELAVIL [Concomitant]
     Dosage: 50 MG
  9. FLEXERIL [Concomitant]
     Dosage: 10 MG
  10. LIPITOR [Suspect]
     Dosage: 40 MG
  11. VICODIN [Concomitant]
     Dosage: 5-500 MG PER TABLET
  12. VASOTEC [Concomitant]
     Dosage: 20 MG
  13. GLUCOPHAGE [Concomitant]
     Dosage: 1000 MG
  14. PRAVACHOL [Concomitant]
     Dosage: 40 MG
  15. LYRICA [Suspect]
     Dosage: 100 MG
  16. ZYRTEC [Suspect]
     Dosage: 10 MG
  17. ROFLUMILAST [Concomitant]
     Dosage: 500 MCG
  18. VENTOLIN [Concomitant]
     Dosage: 90 MCG/ACTUATION INHALER
  19. IBUPROFEN (ADVIL) [Concomitant]
     Dosage: 800 MG
  20. POTASSIUM CHLORIDE [Concomitant]
     Dosage: 20 MEQ

REACTIONS (1)
  - NO ADVERSE EVENT [None]
